FAERS Safety Report 4928658-9 (Version None)
Quarter: 2006Q1

REPORT INFORMATION
  Report Type: 
  Country: None (occurrence: None)
  Receive Date: 20060301
  Receipt Date: 20060224
  Transmission Date: 20060701
  Serious: Yes (Death)
  Sender: FDA-Public Use
  Company Number: 2006UW03217

PATIENT
  Age: 67 Year
  Sex: Female

DRUGS (1)
  1. IRESSA [Suspect]
     Route: 048

REACTIONS (1)
  - DEATH [None]
